FAERS Safety Report 21520095 (Version 2)
Quarter: 2022Q4

REPORT INFORMATION
  Report Type: Report from Study
  Country: US (occurrence: US)
  Receive Date: 20221028
  Receipt Date: 20221117
  Transmission Date: 20230113
  Serious: Yes (Other)
  Sender: FDA-Public Use
  Company Number: US-OTSUKA-2022_046465

PATIENT
  Age: 33 Year
  Sex: Female
  Weight: 85.7 kg

DRUGS (15)
  1. TOLVAPTAN [Suspect]
     Active Substance: TOLVAPTAN
     Indication: Congenital cystic kidney disease
     Dosage: 45 MG, QD, IN THE MORNING (AM)
     Route: 048
     Dates: start: 20210623
  2. TOLVAPTAN [Suspect]
     Active Substance: TOLVAPTAN
     Dosage: 15 MG, QD, IN THE EVENING (PM)
     Route: 048
     Dates: start: 20210623
  3. TYLENOL [Concomitant]
     Active Substance: ACETAMINOPHEN
     Indication: Pain
     Dosage: 1 DF, Q4HR, AS NEEDED
     Route: 048
     Dates: start: 20160204
  4. ALBUTEROL SULFATE [Concomitant]
     Active Substance: ALBUTEROL SULFATE
     Indication: Dyspnoea
     Dosage: 2 PUFFS, Q4HR, AS NEEDED
     Route: 055
     Dates: start: 20211112
  5. BUSPIRONE [Concomitant]
     Active Substance: BUSPIRONE HYDROCHLORIDE
     Indication: Product used for unknown indication
     Dosage: 30 MG, QD, NIGHTLY
     Route: 048
  6. CHLORPHENIRAMINE MALEATE [Concomitant]
     Active Substance: CHLORPHENIRAMINE MALEATE
     Indication: Hypersensitivity
     Dosage: 1 DF, QD, WITH LUNCH
     Route: 048
  7. VITAMIN D3 [Concomitant]
     Active Substance: CHOLECALCIFEROL
     Indication: Product used for unknown indication
     Dosage: 3000 IU, QD
     Route: 048
  8. TEMOVATE [Concomitant]
     Active Substance: CLOBETASOL PROPIONATE
     Indication: Eczema
     Dosage: 0.05 %, BID
     Route: 061
     Dates: start: 20211112
  9. VITAMIN B12 [Concomitant]
     Active Substance: CYANOCOBALAMIN
     Indication: Product used for unknown indication
     Dosage: 2 DF, QD
     Route: 048
  10. NEURONTIN [Concomitant]
     Active Substance: GABAPENTIN
     Indication: Product used for unknown indication
     Dosage: 300 MG, TID
     Route: 048
     Dates: start: 20210301
  11. LAMICTAL [Concomitant]
     Active Substance: LAMOTRIGINE
     Indication: Product used for unknown indication
     Dosage: 200 MG, QD, PM
     Route: 048
     Dates: start: 20180418
  12. SYNTHROID [Concomitant]
     Active Substance: LEVOTHYROXINE SODIUM
     Indication: Product used for unknown indication
     Dosage: 150 ?G, QD, EVERY MORNING 30 MINUTES BEFORE FOOLD ON AN EMPTY STOMACH
     Route: 048
     Dates: start: 20220707
  13. SINGULAIR [Concomitant]
     Active Substance: MONTELUKAST SODIUM
     Indication: Product used for unknown indication
     Dosage: 10 MG, QD
     Route: 048
     Dates: start: 20220127
  14. COZAAR [Concomitant]
     Active Substance: LOSARTAN POTASSIUM
     Indication: Product used for unknown indication
     Dosage: 25 MG, QD
     Route: 048
     Dates: start: 20220926
  15. BACTROBAN [Concomitant]
     Active Substance: MUPIROCIN\MUPIROCIN CALCIUM
     Indication: Skin infection
     Dosage: 2 %, BID, SMALL AMOUNT
     Route: 061
     Dates: start: 20220217

REACTIONS (15)
  - Hallucination [Recovering/Resolving]
  - Nephrolithiasis [Unknown]
  - Delusion [Recovered/Resolved]
  - Kidney enlargement [Unknown]
  - Urine ketone body present [Unknown]
  - Drug intolerance [Unknown]
  - Body mass index increased [Unknown]
  - Back pain [Unknown]
  - Blood sodium decreased [Unknown]
  - Blood creatinine increased [Not Recovered/Not Resolved]
  - Abdominal pain [Unknown]
  - Headache [Unknown]
  - Fatigue [Unknown]
  - Nocturia [Unknown]
  - Polyuria [Recovering/Resolving]

NARRATIVE: CASE EVENT DATE: 20220501
